FAERS Safety Report 4572558-3 (Version None)
Quarter: 2005Q1

REPORT INFORMATION
  Report Type: 
  Country: None (occurrence: None)
  Receive Date: 20050208
  Receipt Date: 20050127
  Transmission Date: 20050727
  Serious: Yes (Other)
  Sender: FDA-Public Use
  Company Number: US-JNJFOC-20050200111

PATIENT
  Sex: Male
  Weight: 106.6 kg

DRUGS (20)
  1. INFLIXIMAB [Suspect]
     Indication: RHEUMATOID ARTHRITIS
     Route: 042
  2. UNIRETIC [Concomitant]
  3. UNIRETIC [Concomitant]
  4. METHOTREXATE [Concomitant]
  5. FOLIC ACID [Concomitant]
  6. AVANDIA [Concomitant]
  7. METFORMIN HCL [Concomitant]
  8. PRAVACHOL [Concomitant]
  9. ASPIRIN [Concomitant]
  10. OCUVITE [Concomitant]
  11. OCUVITE [Concomitant]
  12. OCUVITE [Concomitant]
  13. MULTI-VITAMIN [Concomitant]
  14. MULTI-VITAMIN [Concomitant]
  15. MULTI-VITAMIN [Concomitant]
  16. MULTI-VITAMIN [Concomitant]
  17. MULTI-VITAMIN [Concomitant]
  18. MULTI-VITAMIN [Concomitant]
  19. MULTI-VITAMIN [Concomitant]
  20. MULTI-VITAMIN [Concomitant]

REACTIONS (2)
  - SKIN CANCER [None]
  - SQUAMOUS CELL CARCINOMA [None]
